FAERS Safety Report 18115550 (Version 1)
Quarter: 2020Q3

REPORT INFORMATION
  Report Type: Spontaneous
  Country: JP (occurrence: JP)
  Receive Date: 20200805
  Receipt Date: 20200805
  Transmission Date: 20201103
  Serious: Yes (Death, Other)
  Sender: FDA-Public Use
  Company Number: JP-ACTELION-A-CH2017-157640

PATIENT
  Age: 77 Year
  Sex: Female
  Weight: 41 kg

DRUGS (23)
  1. UPTRAVI [Suspect]
     Active Substance: SELEXIPAG
     Indication: PULMONARY ARTERIAL HYPERTENSION
     Dosage: 0.8 MG, BID
     Route: 048
     Dates: start: 20170608, end: 20170705
  2. UPTRAVI [Suspect]
     Active Substance: SELEXIPAG
     Dosage: 0.6 MG, BID
     Route: 048
     Dates: start: 20170525, end: 20170607
  3. FUROSEMIDE. [Concomitant]
     Active Substance: FUROSEMIDE
     Dosage: 10 MG, QD
     Route: 048
     Dates: start: 20171129, end: 20171204
  4. FUROSEMIDE. [Concomitant]
     Active Substance: FUROSEMIDE
     Dosage: 20 MG, QD
     Route: 048
     Dates: start: 20180606, end: 20200117
  5. UPTRAVI [Suspect]
     Active Substance: SELEXIPAG
     Dosage: 0.4 MG, BID
     Route: 048
     Dates: start: 20170511, end: 20170524
  6. UPTRAVI [Suspect]
     Active Substance: SELEXIPAG
     Dosage: 0.4 MG, BID
     Route: 048
     Dates: start: 20181010, end: 20191122
  7. UPTRAVI [Suspect]
     Active Substance: SELEXIPAG
     Dosage: 1.0 MG, BID
     Route: 048
     Dates: start: 20170706, end: 20170719
  8. ADCIRCA [Suspect]
     Active Substance: TADALAFIL
     Indication: PULMONARY ARTERIAL HYPERTENSION
     Dosage: 40 MG, QD
     Route: 048
     Dates: end: 20200117
  9. SAMSCA [Concomitant]
     Active Substance: TOLVAPTAN
     Dosage: 7.5 MG, QD
     Route: 048
     Dates: end: 20191217
  10. OPSUMIT [Suspect]
     Active Substance: MACITENTAN
     Indication: PULMONARY ARTERIAL HYPERTENSION
     Dosage: 10 MG, QD
     Route: 048
     Dates: start: 20170907, end: 20200117
  11. VERAPAMIL HYDROCHLORIDE. [Concomitant]
     Active Substance: VERAPAMIL HYDROCHLORIDE
     Indication: ARRHYTHMIA
     Dosage: 80 MG, QD
     Route: 048
     Dates: end: 20180605
  12. UPTRAVI [Suspect]
     Active Substance: SELEXIPAG
     Dosage: 1.2 MG, BID
     Route: 048
     Dates: start: 20170720, end: 20170823
  13. UPTRAVI [Suspect]
     Active Substance: SELEXIPAG
     Dosage: 1.4 MG, BID
     Route: 048
     Dates: start: 20170824, end: 20170906
  14. FUROSEMIDE. [Concomitant]
     Active Substance: FUROSEMIDE
     Dosage: 40 MG, QD
     Route: 048
     Dates: start: 20180207, end: 20180605
  15. UPTRAVI [Suspect]
     Active Substance: SELEXIPAG
     Dosage: 0.2 MG, BID
     Route: 048
     Dates: start: 20170426, end: 20170510
  16. UPTRAVI [Suspect]
     Active Substance: SELEXIPAG
     Dosage: 0.8 MG, BID
     Route: 048
     Dates: start: 20180502, end: 20181009
  17. FUROSEMIDE. [Concomitant]
     Active Substance: FUROSEMIDE
     Indication: CARDIAC FAILURE
     Dosage: 10 MG, QD
     Route: 048
     Dates: end: 20170906
  18. FUROSEMIDE. [Concomitant]
     Active Substance: FUROSEMIDE
     Dosage: 20 MG, QD
     Route: 048
     Dates: start: 20171205, end: 20180206
  19. UPTRAVI [Suspect]
     Active Substance: SELEXIPAG
     Dosage: 1.6 MG, BID
     Route: 048
     Dates: start: 20170907, end: 20180206
  20. UPTRAVI [Suspect]
     Active Substance: SELEXIPAG
     Dosage: 1.2 MG, BID
     Route: 048
     Dates: start: 20180207, end: 20180501
  21. LANSOPRAZOLE. [Concomitant]
     Active Substance: LANSOPRAZOLE
     Indication: SENSATION OF FOREIGN BODY
     Dosage: 15 MG, QD
     Route: 048
     Dates: start: 20170621, end: 20170719
  22. SEEBRI [Concomitant]
     Active Substance: GLYCOPYRROLATE
     Indication: DEFORMITY THORAX
     Dosage: 50 MCG, QD
     Dates: end: 20171212
  23. ULTIBRO [Concomitant]
     Active Substance: GLYCOPYRRONIUM\INDACATEROL
     Indication: DEFORMITY THORAX
     Dosage: 1 DF, QD
     Dates: start: 20171213, end: 20200114

REACTIONS (8)
  - Gastritis [Recovered/Resolved]
  - Constipation [Recovering/Resolving]
  - Condition aggravated [Fatal]
  - Oropharyngeal discomfort [Recovering/Resolving]
  - Tongue neoplasm malignant stage unspecified [Fatal]
  - Cardiac failure [Recovering/Resolving]
  - Pulmonary arterial hypertension [Fatal]
  - Insomnia [Recovering/Resolving]

NARRATIVE: CASE EVENT DATE: 20170621
